FAERS Safety Report 6590737-0 (Version None)
Quarter: 2010Q1

REPORT INFORMATION
  Report Type: 
  Country: None (occurrence: None)
  Receive Date: 20100219
  Receipt Date: 20100211
  Transmission Date: 20100710
  Serious: Yes (Hospitalization, Other)
  Sender: FDA-Public Use
  Company Number: US-BRISTOL-MYERS SQUIBB COMPANY-14974026

PATIENT
  Age: 42 Year
  Sex: Female

DRUGS (2)
  1. DASATINIB [Suspect]
     Indication: BREAST CANCER METASTATIC
     Dates: start: 20091102
  2. TAXOL [Suspect]
     Indication: BREAST CANCER METASTATIC
     Dates: start: 20091102, end: 20091214

REACTIONS (9)
  - ALANINE AMINOTRANSFERASE INCREASED [None]
  - GRANULOCYTE COUNT DECREASED [None]
  - HAEMOGLOBIN DECREASED [None]
  - HYPOALBUMINAEMIA [None]
  - HYPOPHOSPHATAEMIA [None]
  - PLATELET COUNT DECREASED [None]
  - PNEUMONITIS [None]
  - PYREXIA [None]
  - SINUSITIS [None]
